FAERS Safety Report 4985766-4 (Version None)
Quarter: 2006Q2

REPORT INFORMATION
  Report Type: 
  Country: None (occurrence: None)
  Receive Date: 20060421
  Receipt Date: 20060419
  Transmission Date: 20061013
  Serious: Yes (Disabling, Other)
  Sender: FDA-Public Use
  Company Number: HQWYE696207FEB06

PATIENT
  Age: 62 Year
  Sex: Male

DRUGS (3)
  1. PROPRANOLOL HYDROCHLORIDE [Suspect]
     Indication: TREMOR
     Dosage: TWICE DAILY
     Dates: start: 19900101
  2. PRIMIDONE [Suspect]
     Indication: TREMOR
     Dates: start: 20051001
  3. TAMSULOSIN HCL [Concomitant]

REACTIONS (2)
  - DRUG INTERACTION [None]
  - ERECTILE DYSFUNCTION [None]
